FAERS Safety Report 5482682-9 (Version None)
Quarter: 2007Q4

REPORT INFORMATION
  Report Type: 
  Country: None (occurrence: None)
  Receive Date: 20071011
  Receipt Date: 20070927
  Transmission Date: 20080405
  Serious: Yes (Hospitalization)
  Sender: FDA-Public Use
  Company Number: ES-ELI_LILLY_AND_COMPANY-ES200710000735

PATIENT
  Age: 80 Year
  Sex: Female

DRUGS (4)
  1. FORTEO [Suspect]
     Indication: OSTEOPOROSIS
     Dosage: 20 UG, UNKNOWN
     Route: 058
     Dates: start: 20060822
  2. INSULIN [Concomitant]
     Indication: DIABETES MELLITUS
  3. IRON [Concomitant]
     Indication: ANAEMIA
  4. GELOCATIL [Concomitant]
     Indication: PAIN

REACTIONS (7)
  - ANAEMIA [None]
  - DIZZINESS [None]
  - FALL [None]
  - FATIGUE [None]
  - GASTRIC HAEMORRHAGE [None]
  - GASTRIC ULCER [None]
  - HYPOTENSION [None]
